FAERS Safety Report 5488722-5 (Version None)
Quarter: 2007Q4

REPORT INFORMATION
  Report Type: 
  Country: None (occurrence: None)
  Receive Date: 20071017
  Receipt Date: 20071009
  Transmission Date: 20080405
  Serious: Yes (Death, Other)
  Sender: FDA-Public Use
  Company Number: FR-PFIZER INC-2007076666

PATIENT
  Sex: Female
  Weight: 55 kg

DRUGS (4)
  1. SUTENT [Suspect]
     Indication: RENAL CANCER METASTATIC
  2. OMEPRAZOLE [Concomitant]
     Route: 048
  3. SEROPRAM [Concomitant]
     Indication: DEPRESSION
     Route: 048
  4. SKENAN [Concomitant]
     Indication: PAIN
     Route: 048

REACTIONS (3)
  - AMENORRHOEA [None]
  - DISEASE PROGRESSION [None]
  - RENAL CANCER METASTATIC [None]
